FAERS Safety Report 26173126 (Version 1)
Quarter: 2025Q4

REPORT INFORMATION
  Report Type: Spontaneous
  Country: US (occurrence: US)
  Receive Date: 20251218
  Receipt Date: 20251218
  Transmission Date: 20260118
  Serious: No
  Sender: BIOVITRUM
  Company Number: US-BIOVITRUM-2025-US-017349

PATIENT
  Age: 60 Year
  Sex: Male

DRUGS (2)
  1. PACRITINIB [Suspect]
     Active Substance: PACRITINIB
     Indication: Myelofibrosis
     Dosage: BID
     Route: 048
  2. PACRITINIB [Suspect]
     Active Substance: PACRITINIB
     Dosage: BID
     Route: 048

REACTIONS (1)
  - Rash [Recovered/Resolved]
